FAERS Safety Report 15531087 (Version 2)
Quarter: 2019Q1

REPORT INFORMATION
  Report Type: Spontaneous
  Country: US (occurrence: US)
  Receive Date: 20181019
  Receipt Date: 20190104
  Transmission Date: 20190417
  Serious: No
  Sender: FDA-Public Use
  Company Number: US-BEH-2018095788

PATIENT
  Age: 30 Year
  Sex: Female
  Weight: 58.96 kg

DRUGS (10)
  1. TRIAMCINOLON                       /00031901/ [Concomitant]
     Dosage: UNK
     Route: 065
     Dates: start: 20170210
  2. FLUOXETINE [Concomitant]
     Active Substance: FLUOXETINE HYDROCHLORIDE
  3. HIZENTRA [Suspect]
     Active Substance: HUMAN IMMUNOGLOBULIN G
     Indication: IMMUNODEFICIENCY COMMON VARIABLE
     Dosage: 4 G, QW
     Route: 058
     Dates: start: 20171011
  4. NASACORT [Concomitant]
     Active Substance: TRIAMCINOLONE ACETONIDE
  5. METRONIDAZOLE. [Concomitant]
     Active Substance: METRONIDAZOLE
     Dosage: UNK
     Route: 065
     Dates: start: 20181001, end: 20181015
  6. SYMBICORT [Concomitant]
     Active Substance: BUDESONIDE\FORMOTEROL FUMARATE DIHYDRATE
     Dosage: UNK
     Route: 065
     Dates: start: 20170210
  7. DHA [Concomitant]
     Active Substance: DIETARY SUPPLEMENT
     Dosage: UNK
     Route: 065
     Dates: start: 20180524
  8. OLOPATADINE. [Concomitant]
     Active Substance: OLOPATADINE
     Dosage: UNK
     Route: 065
     Dates: start: 20170210
  9. ONDANSETRON [Concomitant]
     Active Substance: ONDANSETRON
  10. BUDESONIDE. [Concomitant]
     Active Substance: BUDESONIDE

REACTIONS (1)
  - No adverse event [Unknown]
